FAERS Safety Report 13077075 (Version 1)
Quarter: 2016Q4

REPORT INFORMATION
  Report Type: Spontaneous
  Country: US (occurrence: US)
  Receive Date: 20161230
  Receipt Date: 20161230
  Transmission Date: 20170207
  Serious: Yes (Hospitalization, Other)
  Sender: FDA-Public Use
  Company Number: US-SAOL THERAPEUTICS-2016SAO01313

PATIENT
  Age: 45 Year
  Sex: Female

DRUGS (17)
  1. BACLOFEN. [Suspect]
     Active Substance: BACLOFEN
     Indication: POST LAMINECTOMY SYNDROME
     Dosage: 655 ?G, \DAY
     Route: 037
     Dates: start: 20161219
  2. CLONIDINE. [Suspect]
     Active Substance: CLONIDINE
     Dosage: 443.1 ?G, \DAY
     Route: 037
     Dates: start: 20161219
  3. BUPIVACAINE. [Suspect]
     Active Substance: BUPIVACAINE
     Dosage: 8.932 MG, \DAY
     Dates: start: 20161219
  4. DILAUDID [Suspect]
     Active Substance: HYDROMORPHONE HYDROCHLORIDE
     Dosage: 6.996 MG, \DAY
     Route: 037
     Dates: start: 20161219
  5. BUPIVACAINE. [Suspect]
     Active Substance: BUPIVACAINE
     Dosage: 6.996 MG, \DAY
     Route: 037
     Dates: start: 20161219
  6. BACLOFEN. [Suspect]
     Active Substance: BACLOFEN
     Indication: PAIN
     Dosage: 513 ?G, \DAY
     Route: 037
     Dates: start: 20161219
  7. BUPIVACAINE. [Suspect]
     Active Substance: BUPIVACAINE
     Dosage: 8.71 MG, \DAY
     Route: 037
     Dates: start: 20161219
  8. DILAUDID [Suspect]
     Active Substance: HYDROMORPHONE HYDROCHLORIDE
     Dosage: 8.710 MG, \DAY
     Route: 037
     Dates: start: 20161219
  9. DILAUDID [Suspect]
     Active Substance: HYDROMORPHONE HYDROCHLORIDE
     Dosage: 8.932 MG, \DAY
     Route: 037
     Dates: start: 20161219
  10. ALPRAZOLAM. [Concomitant]
     Active Substance: ALPRAZOLAM
     Dosage: 1 TABLETS, 3X/DAY
  11. CLONIDINE. [Suspect]
     Active Substance: CLONIDINE
     Dosage: 419.8 ?G, \DAY
     Route: 037
     Dates: start: 20161219
  12. BACLOFEN. [Suspect]
     Active Substance: BACLOFEN
     Indication: POST LAMINECTOMY SYNDROME
     Dosage: 696.8 ?G, \DAY
     Route: 037
     Dates: start: 20161219
  13. CARISOPRODOL. [Concomitant]
     Active Substance: CARISOPRODOL
     Dosage: .5 TABLETS, 4X/DAY
  14. BACLOFEN. [Suspect]
     Active Substance: BACLOFEN
     Indication: PAIN
     Dosage: 559.7 ?G, \DAY
     Route: 037
     Dates: start: 20161219
  15. CLONIDINE. [Suspect]
     Active Substance: CLONIDINE
     Dosage: 535.9 ?G, \DAY
     Route: 037
     Dates: start: 20161219
  16. CLONIDINE. [Suspect]
     Active Substance: CLONIDINE
     Dosage: 551.6 ?G, \DAY
     Dates: start: 20161219
  17. HYDROMORPHONE [Concomitant]
     Active Substance: HYDROMORPHONE
     Dosage: UNK, 3X/DAY

REACTIONS (2)
  - Mental status changes [Recovered/Resolved]
  - Off label use [Unknown]

NARRATIVE: CASE EVENT DATE: 20161221
